FAERS Safety Report 26021534 (Version 3)
Quarter: 2025Q4

REPORT INFORMATION
  Report Type: Report from Study
  Country: US (occurrence: US)
  Receive Date: 20251110
  Receipt Date: 20251230
  Transmission Date: 20260117
  Serious: No
  Sender: MALLINCKRODT
  Company Number: US-MALLINCKRODT-MNK202506903

PATIENT
  Sex: Female

DRUGS (1)
  1. CORTICOTROPIN [Suspect]
     Active Substance: CORTICOTROPIN
     Indication: Neurotrophic keratopathy
     Dosage: UNKNOWN

REACTIONS (7)
  - Paraesthesia [Unknown]
  - Balance disorder [Recovering/Resolving]
  - Gait disturbance [Recovering/Resolving]
  - Hypoaesthesia [Unknown]
  - Alopecia [Unknown]
  - Dyspepsia [Unknown]
  - Injection site haemorrhage [Unknown]
